FAERS Safety Report 5092499-5 (Version None)
Quarter: 2006Q3

REPORT INFORMATION
  Report Type: 
  Country: None (occurrence: None)
  Receive Date: 20060823
  Receipt Date: 20060810
  Transmission Date: 20061208
  Serious: Yes (Other)
  Sender: FDA-Public Use
  Company Number: 2006BH012350

PATIENT
  Age: 30 Month
  Sex: Male

DRUGS (2)
  1. IVEEGAM [Suspect]
     Indication: KAWASAKI'S DISEASE
     Dates: start: 20060718
  2. IVEEGAM [Suspect]
     Indication: KAWASAKI'S DISEASE
     Dates: start: 20060720

REACTIONS (1)
  - DRUG INEFFECTIVE [None]
